FAERS Safety Report 6568188-4 (Version None)
Quarter: 2010Q1

REPORT INFORMATION
  Report Type: 
  Country: None (occurrence: None)
  Receive Date: 20100127
  Receipt Date: 20100112
  Transmission Date: 20100710
  Serious: Yes (Hospitalization)
  Sender: FDA-Public Use
  Company Number: KV201000025

PATIENT
  Age: 74 Year
  Sex: Male
  Weight: 88 kg

DRUGS (19)
  1. MORPHINE SULFATE [Suspect]
     Indication: PAIN
     Dosage: 15MG, BID, ORAL
     Route: 048
     Dates: start: 20080913, end: 20080925
  2. DILAUDID [Concomitant]
  3. DIAZEPAM [Concomitant]
  4. IBUPROFEN [Concomitant]
  5. SYNTHROID [Concomitant]
  6. ZOLOFT [Concomitant]
  7. ALPRAZOLAM [Concomitant]
  8. CRESTOR [Concomitant]
  9. TOPROL-XL [Concomitant]
  10. PRILOSEC /00661201/ (OMEPRAZOLE) [Concomitant]
  11. GABAPENTIN [Concomitant]
  12. COLACE (DOCUSATE SODIUM) [Concomitant]
  13. ASPIRIN [Concomitant]
  14. BENADRYL [Concomitant]
  15. ALBUTEROL /00139501/ (SALBUTAMOL) [Concomitant]
  16. METAMUCIL /00029101/ (PLANTAGO OVATA) [Concomitant]
  17. COMBIVENT /01033501/ (IPRATROPIUM BROMIDE, SALBUTAMOL) [Concomitant]
  18. MULTIVITAMIN /00831701/ (VITAMINS NOS) [Concomitant]
  19. CALCIUM (CALCIUM) [Concomitant]

REACTIONS (15)
  - ACTIVITIES OF DAILY LIVING IMPAIRED [None]
  - ANXIETY [None]
  - ASTHENIA [None]
  - CONFUSIONAL STATE [None]
  - DEPRESSION [None]
  - DRUG INEFFECTIVE [None]
  - FATIGUE [None]
  - GAIT DISTURBANCE [None]
  - HALLUCINATION [None]
  - MULTIPLE DRUG OVERDOSE [None]
  - MUSCLE SPASMS [None]
  - NERVOUSNESS [None]
  - PAIN [None]
  - SOMNOLENCE [None]
  - SUICIDAL IDEATION [None]
